FAERS Safety Report 4853448-5 (Version None)
Quarter: 2005Q4

REPORT INFORMATION
  Report Type: 
  Country: None (occurrence: None)
  Receive Date: 20051214
  Receipt Date: 20051207
  Transmission Date: 20060501
  Serious: Yes (Other)
  Sender: FDA-Public Use
  Company Number: US-ROCHE-428160

PATIENT
  Age: 76 Year
  Sex: Female

DRUGS (4)
  1. BONIVA [Suspect]
     Indication: OSTEOPOROSIS
     Route: 048
     Dates: start: 20051107
  2. ASPIRIN [Concomitant]
     Dosage: DRUG NAME REPORTED AS ^BABY ASPIRIN^.
     Route: 048
  3. LIPITOR [Concomitant]
     Route: 048
  4. MIACALCIN [Concomitant]
     Indication: OSTEOPOROSIS

REACTIONS (5)
  - ASTHENIA [None]
  - BALANCE DISORDER [None]
  - HYPERTENSION [None]
  - RETINAL ARTERY EMBOLISM [None]
  - VISUAL DISTURBANCE [None]
